FAERS Safety Report 7088626-0 (Version None)
Quarter: 2010Q4

REPORT INFORMATION
  Report Type: 
  Country: None (occurrence: None)
  Receive Date: 20101029
  Receipt Date: 20101014
  Transmission Date: 20110411
  Serious: Yes (Other)
  Sender: FDA-Public Use
  Company Number: 2010GW000844

PATIENT
  Age: 46 Year
  Sex: Female
  Weight: 115.6 kg

DRUGS (20)
  1. MAXAIR [Suspect]
     Indication: ASTHMA
     Dosage: BID
  2. MILNACIPRAN HYDROCHLORIDE (MILNACIPRAN HYDROCHLORIDE) [Suspect]
     Indication: FIBROMYALGIA
     Dosage: 200 MG; BID, 12.5 MG; QD, 12.5 MG; BID, 50 MG; BID, 100 MG; BID
     Dates: start: 20100601, end: 20100601
  3. MILNACIPRAN HYDROCHLORIDE (MILNACIPRAN HYDROCHLORIDE) [Suspect]
     Indication: FIBROMYALGIA
     Dosage: 200 MG; BID, 12.5 MG; QD, 12.5 MG; BID, 50 MG; BID, 100 MG; BID
     Dates: start: 20100601, end: 20100601
  4. MILNACIPRAN HYDROCHLORIDE (MILNACIPRAN HYDROCHLORIDE) [Suspect]
     Indication: FIBROMYALGIA
     Dosage: 200 MG; BID, 12.5 MG; QD, 12.5 MG; BID, 50 MG; BID, 100 MG; BID
     Dates: start: 20100601, end: 20100701
  5. MILNACIPRAN HYDROCHLORIDE (MILNACIPRAN HYDROCHLORIDE) [Suspect]
     Indication: FIBROMYALGIA
     Dosage: 200 MG; BID, 12.5 MG; QD, 12.5 MG; BID, 50 MG; BID, 100 MG; BID
     Dates: start: 20100701, end: 20100801
  6. MILNACIPRAN HYDROCHLORIDE (MILNACIPRAN HYDROCHLORIDE) [Suspect]
     Indication: FIBROMYALGIA
     Dosage: 200 MG; BID, 12.5 MG; QD, 12.5 MG; BID, 50 MG; BID, 100 MG; BID
     Dates: start: 20100801, end: 20100914
  7. ADVAIR DISKUS 100/50 [Suspect]
     Indication: ASTHMA
     Dosage: BID
  8. PULMICORT [Suspect]
     Indication: ASTHMA
     Dosage: 180 UG; BID
  9. ZILEUTON (ZILEUTON) (600 MG) [Suspect]
     Indication: ASTHMA
     Dosage: 1200 MG; TID
  10. THEOPHYLLINE [Suspect]
     Indication: ASTHMA
     Dosage: 200 MG; QAM, 400 MG;HS
  11. RHINOCORT [Suspect]
     Indication: SEASONAL ALLERGY
     Dosage: 32 UG; QD
  12. MEDROL [Suspect]
     Indication: SINUSITIS
  13. XYZAL [Concomitant]
  14. RELPAX [Concomitant]
  15. NEXIUM [Concomitant]
  16. TOPAMAX [Concomitant]
  17. VITAMIN B-12 [Concomitant]
  18. PERCOCET [Concomitant]
  19. MULTI-VITAMINS [Concomitant]
  20. CALCIUM WITH VITAMIN D [Concomitant]

REACTIONS (4)
  - BLOOD PRESSURE INCREASED [None]
  - CATARACT [None]
  - OVERDOSE [None]
  - SINUSITIS [None]
